FAERS Safety Report 7606991-X (Version None)
Quarter: 2011Q3

REPORT INFORMATION
  Report Type: 
  Country: None (occurrence: None)
  Receive Date: 20110712
  Receipt Date: 20110712
  Transmission Date: 20111222
  Serious: Yes (Hospitalization)
  Sender: FDA-Public Use
  Company Number: None

PATIENT
  Age: 63 Year
  Sex: Male
  Weight: 106 kg

DRUGS (2)
  1. METOPROLOL TARTRATE [Suspect]
     Indication: CORONARY ARTERIAL STENT INSERTION
     Dosage: 12.5 MG ONCE PO
     Route: 048
     Dates: start: 20071203, end: 20110620
  2. TIMOLOL MALEATE [Suspect]
     Indication: GLAUCOMA
     Dosage: 1 DROPS BID EYE
     Dates: start: 20081211, end: 20110621

REACTIONS (1)
  - BRADYCARDIA [None]
